FAERS Safety Report 15260598 (Version 3)
Quarter: 2018Q4

REPORT INFORMATION
  Report Type: Spontaneous
  Country: RO (occurrence: RO)
  Receive Date: 20180809
  Receipt Date: 20181001
  Transmission Date: 20190204
  Serious: Yes (Death, Hospitalization, Other)
  Sender: FDA-Public Use
  Company Number: RO-PFIZER INC-2018317771

PATIENT
  Age: 66 Year
  Sex: Male
  Weight: 56 kg

DRUGS (2)
  1. SUTENT [Suspect]
     Active Substance: SUNITINIB MALATE
     Indication: RENAL CANCER METASTATIC
     Dosage: 50 MG, CYCLIC, 28 DAYS OF TREATMENT WITH 14 DAYS PAUSE
     Route: 048
     Dates: start: 201702, end: 20171202
  2. SUTENT [Suspect]
     Active Substance: SUNITINIB MALATE
     Dosage: 50 MG, CYCLIC, 28 DAYS OF TREATMENT WITH 14 DAYS PAUSE
     Route: 048
     Dates: end: 20180202

REACTIONS (6)
  - Neoplasm progression [Fatal]
  - Brain neoplasm benign [Fatal]
  - Hemiparesis [Fatal]
  - Ascites [Fatal]
  - Post thrombotic syndrome [Fatal]
  - Cardiopulmonary failure [Fatal]

NARRATIVE: CASE EVENT DATE: 20171202
